FAERS Safety Report 9258457 (Version 1)
Quarter: 2013Q2

REPORT INFORMATION
  Report Type: Spontaneous
  Country: US (occurrence: US)
  Receive Date: 20130426
  Receipt Date: 20130426
  Transmission Date: 20140414
  Serious: Yes (Other)
  Sender: FDA-Public Use
  Company Number: PHHY2013US038583

PATIENT
  Sex: Female

DRUGS (5)
  1. CARBOPLATIN [Suspect]
     Indication: OVARIAN CANCER
     Dosage: UNK UKN, UNK
  2. PACLITAXEL [Suspect]
     Indication: OVARIAN CANCER
  3. CISPLATIN [Suspect]
     Indication: OVARIAN CANCER
     Route: 033
  4. OXALIPLATIN [Suspect]
     Indication: OVARIAN CANCER
  5. PEGYLATED LIPOSOMAL DOXORUBICIN HYDROCHLORIDE [Suspect]
     Indication: OVARIAN CANCER
     Dosage: 840 MG/M2, UNK

REACTIONS (6)
  - Hydronephrosis [Unknown]
  - Renal failure chronic [Unknown]
  - Hypertension [Unknown]
  - Ovarian cancer recurrent [Unknown]
  - Ovarian cancer [Unknown]
  - Malignant neoplasm progression [Unknown]
